FAERS Safety Report 22610737 (Version 1)
Quarter: 2023Q2

REPORT INFORMATION
  Report Type: Report from Study
  Country: US (occurrence: US)
  Receive Date: 20230616
  Receipt Date: 20230616
  Transmission Date: 20230722
  Serious: Yes (Hospitalization)
  Sender: FDA-Public Use
  Company Number: US-BAYER-2023A074294

PATIENT
  Age: 82 Year
  Sex: Female
  Weight: 78.912 kg

DRUGS (5)
  1. ADEMPAS [Suspect]
     Active Substance: RIOCIGUAT
     Indication: Pulmonary arterial hypertension
     Dosage: UNK
     Dates: start: 20221102
  2. ADEMPAS [Suspect]
     Active Substance: RIOCIGUAT
     Indication: Pulmonary arterial hypertension
     Dosage: 2.5 MG, TID
     Route: 048
  3. ADEMPAS [Suspect]
     Active Substance: RIOCIGUAT
     Indication: Pulmonary arterial hypertension
     Dosage: 2.5 MG, TID
     Route: 048
  4. OPSUMIT [Concomitant]
     Active Substance: MACITENTAN
  5. ELIQUIS [Concomitant]
     Active Substance: APIXABAN

REACTIONS (3)
  - Gastric haemorrhage [None]
  - Loss of consciousness [None]
  - Haemoglobin decreased [None]

NARRATIVE: CASE EVENT DATE: 20230101
